FAERS Safety Report 7356201-6 (Version None)
Quarter: 2011Q1

REPORT INFORMATION
  Report Type: 
  Country: None (occurrence: None)
  Receive Date: 20110316
  Receipt Date: 20110310
  Transmission Date: 20110831
  Serious: Yes (Hospitalization, Other)
  Sender: FDA-Public Use
  Company Number: FR-PFIZER INC-2011053164

PATIENT
  Age: 88 Year
  Sex: Female
  Weight: 49 kg

DRUGS (5)
  1. INDOCOLLYRE [Suspect]
     Indication: CATARACT OPERATION
     Dosage: 1 DF, 3X/DAY
     Route: 047
     Dates: start: 20101022, end: 20101122
  2. NEXIUM [Suspect]
     Indication: PRODUCT USED FOR UNKNOWN INDICATION
     Dosage: 40 MG, 1X/DAY
     Route: 048
     Dates: start: 20090429
  3. FOZITEC [Suspect]
     Indication: HYPERTENSION
     Dosage: 5 MG, 1X/DAY
     Route: 048
     Dates: start: 20090625
  4. VOLTAREN EMULGEL ^NOVARTIS^ [Suspect]
     Indication: PAIN
     Dosage: 1 TO 2 APPLICATIONS PER DAY
     Route: 003
     Dates: start: 20100617
  5. ALDACTONE [Suspect]
     Indication: CARDIAC FAILURE
     Dosage: 25 MG, 1X/DAY
     Route: 048
     Dates: start: 20090428

REACTIONS (3)
  - GASTROENTERITIS [None]
  - CATARACT [None]
  - HYPONATRAEMIA [None]
